FAERS Safety Report 7041925-0 (Version None)
Quarter: 2010Q4

REPORT INFORMATION
  Report Type: 
  Country: None (occurrence: None)
  Receive Date: 20101013
  Receipt Date: 20100618
  Transmission Date: 20110411
  Serious: No
  Sender: FDA-Public Use
  Company Number: US-ASTRAZENECA-2010SE23897

PATIENT
  Age: 780 Month
  Sex: Male
  Weight: 63.5 kg

DRUGS (2)
  1. SYMBICORT [Suspect]
     Indication: EMPHYSEMA
     Dosage: 160/4.5 UG 2 PUFFS TWO TIMES A DAY
     Route: 055
     Dates: start: 20090901
  2. VENTOLIN [Concomitant]
     Dosage: 2 PUFFS FOUR TIMES A DAY

REACTIONS (1)
  - DYSPNOEA [None]
